FAERS Safety Report 18602777 (Version 1)
Quarter: 2020Q4

REPORT INFORMATION
  Report Type: Spontaneous
  Country: US (occurrence: US)
  Receive Date: 20201210
  Receipt Date: 20201210
  Transmission Date: 20210114
  Serious: No
  Sender: FDA-Public Use
  Company Number: US-PERRIGO-20US014223

PATIENT
  Age: 41 Year
  Sex: Female
  Weight: 61.22 kg

DRUGS (11)
  1. PULMICORT TURBUHALER [Concomitant]
     Active Substance: BUDESONIDE
     Indication: HYPERSENSITIVITY
  2. KETOTIFEN [Concomitant]
     Active Substance: KETOTIFEN
     Indication: SEASONAL ALLERGY
     Dosage: UNK
     Route: 055
     Dates: start: 2018
  3. ADVIL [Concomitant]
     Active Substance: IBUPROFEN
     Indication: DYSMENORRHOEA
  4. ALEVE [Concomitant]
     Active Substance: NAPROXEN SODIUM
     Indication: PAIN
     Dosage: UNK, PRN
     Route: 065
  5. ADVIL [Concomitant]
     Active Substance: IBUPROFEN
     Indication: PAIN
     Dosage: UNK, PRN
     Route: 065
  6. ALEVE [Concomitant]
     Active Substance: NAPROXEN SODIUM
     Indication: DYSMENORRHOEA
  7. ALBUTEROL SULFATE. [Suspect]
     Active Substance: ALBUTEROL SULFATE
     Indication: ASTHMA
     Dosage: UNKNOWN, 2 TO 3 TIMES DAILY PRN
     Route: 055
     Dates: start: 202009, end: 20200930
  8. PULMICORT TURBUHALER [Concomitant]
     Active Substance: BUDESONIDE
     Indication: ASTHMA
     Dosage: UNK
     Route: 065
  9. FLUTICASONE. [Concomitant]
     Active Substance: FLUTICASONE
     Indication: RHINORRHOEA
     Dosage: UNK
     Route: 045
  10. TYLENOL [Concomitant]
     Active Substance: ACETAMINOPHEN
     Indication: PAIN
     Dosage: UNK, PRN
     Route: 065
  11. TYLENOL [Concomitant]
     Active Substance: ACETAMINOPHEN
     Indication: DYSMENORRHOEA

REACTIONS (5)
  - Incorrect dose administered [Recovered/Resolved]
  - Device delivery system issue [Recovered/Resolved]
  - Drug ineffective [Unknown]
  - Choking [Recovered/Resolved]
  - Cough [Recovered/Resolved]

NARRATIVE: CASE EVENT DATE: 202009
